FAERS Safety Report 23886804 (Version 1)
Quarter: 2024Q2

REPORT INFORMATION
  Report Type: Spontaneous
  Country: GB (occurrence: None)
  Receive Date: 20240522
  Receipt Date: 20240522
  Transmission Date: 20240716
  Serious: Yes (Death)
  Sender: FDA-Public Use
  Company Number: GB-MDD US Operations-USW201707-001027

PATIENT
  Age: 69 Year
  Sex: Male

DRUGS (8)
  1. APOMORPHINE HYDROCHLORIDE [Suspect]
     Active Substance: APOMORPHINE HYDROCHLORIDE
     Indication: Product used for unknown indication
     Route: 058
     Dates: start: 20161214
  2. BENSERAZIDE HYDROCHLORIDE\LEVODOPA [Concomitant]
     Active Substance: BENSERAZIDE HYDROCHLORIDE\LEVODOPA
     Dosage: EACH DF CONTAINS 125/62.5 MG (AT 6AM, 8AM, 11AM, 2PM, 5PM, 8PM)
  3. BENSERAZIDE HYDROCHLORIDE\LEVODOPA [Concomitant]
     Active Substance: BENSERAZIDE HYDROCHLORIDE\LEVODOPA
     Dosage: EACH DF CONTAINS 125/62.5 MG (AT 6AM, 8AM, 11AM, 2PM, 5PM, 8PM)
  4. Co-beneldopa CR [Concomitant]
  5. ENTACAPONE [Concomitant]
     Active Substance: ENTACAPONE
  6. PRAMIPEXOLE [Concomitant]
     Active Substance: PRAMIPEXOLE\PRAMIPEXOLE DIHYDROCHLORIDE
     Dosage: 520 MCG
  7. PRAMIPEXOLE [Concomitant]
     Active Substance: PRAMIPEXOLE\PRAMIPEXOLE DIHYDROCHLORIDE
     Dosage: 750 MCG
  8. BENSERAZIDE HYDROCHLORIDE\LEVODOPA [Concomitant]
     Active Substance: BENSERAZIDE HYDROCHLORIDE\LEVODOPA
     Dosage: EACH DF CONTAINS 50/12.5

REACTIONS (2)
  - Death [Fatal]
  - Injection site nodule [Unknown]

NARRATIVE: CASE EVENT DATE: 20240219
